FAERS Safety Report 7252425-7 (Version None)
Quarter: 2011Q1

REPORT INFORMATION
  Report Type: 
  Country: None (occurrence: None)
  Receive Date: 20110129
  Receipt Date: 20100301
  Transmission Date: 20110831
  Serious: No
  Sender: FDA-Public Use
  Company Number: US-ABBOTT-09P-163-0602748-00

PATIENT
  Sex: Female
  Weight: 89.892 kg

DRUGS (5)
  1. HUMIRA [Suspect]
     Indication: PSORIATIC ARTHROPATHY
     Route: 058
     Dates: start: 20100208
  2. LISINOPRIL [Concomitant]
     Indication: HYPERTENSION
     Route: 048
  3. PRAVASTATIN [Concomitant]
     Indication: BLOOD CHOLESTEROL INCREASED
     Route: 048
  4. METHOTREXATE [Concomitant]
     Indication: PSORIATIC ARTHROPATHY
     Dosage: 3 TABS Q WEEK
     Route: 048
  5. HUMIRA [Suspect]
     Indication: PSORIATIC ARTHROPATHY
     Route: 058
     Dates: start: 20091013, end: 20100201

REACTIONS (6)
  - PAIN [None]
  - ARTHRALGIA [None]
  - VOMITING [None]
  - NAUSEA [None]
  - PYREXIA [None]
  - INJECTION SITE PAIN [None]
